FAERS Safety Report 15346369 (Version 2)
Quarter: 2018Q3

REPORT INFORMATION
  Report Type: Spontaneous
  Country: ZA (occurrence: ZA)
  Receive Date: 20180904
  Receipt Date: 20180910
  Transmission Date: 20181010
  Serious: Yes (Hospitalization)
  Sender: FDA-Public Use
  Company Number: ZA-ROCHE-2179892

PATIENT
  Sex: Female

DRUGS (5)
  1. ZUVAMOR [Concomitant]
     Active Substance: ROSUVASTATIN
     Route: 065
  2. PREMARIN [Concomitant]
     Active Substance: ESTROGENS, CONJUGATED
     Route: 065
  3. DOPAQUEL [Concomitant]
     Active Substance: QUETIAPINE
     Route: 065
  4. URBANOL [Concomitant]
     Active Substance: CLOBAZAM
     Route: 065
  5. RIVOTRIL [Suspect]
     Active Substance: CLONAZEPAM
     Indication: PRODUCT USED FOR UNKNOWN INDICATION
     Route: 065

REACTIONS (1)
  - Back injury [Unknown]
